FAERS Safety Report 5643969-X (Version None)
Quarter: 2008Q1

REPORT INFORMATION
  Report Type: 
  Country: None (occurrence: None)
  Receive Date: 20080228
  Receipt Date: 20071203
  Transmission Date: 20080703
  Serious: Yes (Hospitalization)
  Sender: FDA-Public Use
  Company Number: US-ELI_LILLY_AND_COMPANY-US200712000355

PATIENT
  Sex: Male
  Weight: 136.5 kg

DRUGS (25)
  1. BYETTA [Suspect]
     Indication: DIABETES MELLITUS
     Dosage: 5 UG, 2/D
     Route: 058
     Dates: start: 20060501, end: 20060601
  2. BYETTA [Suspect]
     Dosage: 10 UG, 2/D
     Route: 058
     Dates: start: 20060601, end: 20071121
  3. LASIX [Concomitant]
     Dosage: 160 MG, DAILY (1/D)
  4. NOVOLOG MIX 70/30 [Concomitant]
     Dosage: 70 U, 2/D
  5. ALLOPURINOL [Concomitant]
     Dosage: 300 MG, DAILY (1/D)
  6. ACCUPRIL [Concomitant]
     Dosage: 20 MG, DAILY (1/D)
  7. TOPROL [Concomitant]
     Dosage: 200 MG, DAILY (1/D)
  8. ENTERIC ASPIRIN [Concomitant]
     Dosage: 325 MG, DAILY (1/D)
  9. CRESTOR [Concomitant]
     Dosage: 40 MG, DAILY (1/D)
  10. TRICOR [Concomitant]
     Dosage: 140 MG, DAILY (1/D)
  11. FOLIC ACID [Concomitant]
     Dosage: 800 UG, DAILY (1/D)
  12. ASCORBIC ACID [Concomitant]
     Dosage: 500 MG, DAILY (1/D)
  13. VITAMIN B-12 [Concomitant]
     Dosage: UNK, DAILY (1/D)
  14. WELCHOL [Concomitant]
     Dosage: 3125 MG, DAILY (1/D)
  15. PRILOSEC [Concomitant]
     Dosage: 20 MG, DAILY (1/D)
  16. VITAMIN B6 [Concomitant]
     Dosage: 100 MG, DAILY (1/D)
  17. PLAVIX [Concomitant]
     Dosage: 75 MG, DAILY (1/D)
  18. IMDUR [Concomitant]
     Dosage: 120 MG, DAILY (1/D)
  19. NITROGLYCERIN [Concomitant]
     Dosage: 0.4 MG, AS NEEDED
  20. NORVASC [Concomitant]
     Dosage: 10 MG, DAILY (1/D)
  21. ZETIA [Concomitant]
     Dosage: 10 MG, DAILY (1/D)
  22. AVAPRO [Concomitant]
     Dosage: 150 MG, DAILY (1/D)
  23. FISH OIL [Concomitant]
     Dosage: 4000 MG, DAILY (1/D)
  24. ADVAIR DISKUS 100/50 [Concomitant]
     Dosage: UNK, 2/D
  25. LAMISIL [Concomitant]
     Dosage: UNK, UNKNOWN
     Route: 061

REACTIONS (2)
  - PANCREATITIS [None]
  - WEIGHT DECREASED [None]
